FAERS Safety Report 22335457 (Version 1)
Quarter: 2023Q2

REPORT INFORMATION
  Report Type: Spontaneous
  Country: GB (occurrence: GB)
  Receive Date: 20230518
  Receipt Date: 20230518
  Transmission Date: 20230722
  Serious: Yes (Other)
  Sender: FDA-Public Use
  Company Number: GB-AMAROX PHARMA GMBH-AMR2023GB01236

PATIENT
  Age: 87 Year
  Sex: Female

DRUGS (2)
  1. PIRFENIDONE [Suspect]
     Active Substance: PIRFENIDONE
     Indication: Product used for unknown indication
     Dosage: 9 DOSAGE FORM, QD
     Route: 065
  2. PIRFENIDONE [Suspect]
     Active Substance: PIRFENIDONE
     Dosage: 6 DOSAGE FORM, QD
     Route: 065

REACTIONS (1)
  - Adverse reaction [Recovering/Resolving]
